FAERS Safety Report 9917053 (Version 1)
Quarter: 2014Q1

REPORT INFORMATION
  Report Type: Spontaneous
  Country: US (occurrence: US)
  Receive Date: 20140221
  Receipt Date: 20140221
  Transmission Date: 20141002
  Serious: No
  Sender: FDA-Public Use
  Company Number: US-TEVA-464152USA

PATIENT
  Age: 30 Year
  Sex: Female
  Weight: 51.3 kg

DRUGS (1)
  1. PARAGARD 380A [Suspect]
     Indication: CONTRACEPTION
     Route: 015
     Dates: start: 20131122, end: 20140209

REACTIONS (1)
  - Device expulsion [Recovered/Resolved]
